FAERS Safety Report 9611799 (Version 1)
Quarter: 2013Q4

REPORT INFORMATION
  Report Type: Spontaneous
  Country: US (occurrence: None)
  Receive Date: 20131008
  Receipt Date: 20131008
  Transmission Date: 20140711
  Serious: Yes (Hospitalization)
  Sender: FDA-Public Use
  Company Number: 2012033418

PATIENT
  Age: 35 Year
  Sex: Female
  Weight: 115.67 kg

DRUGS (10)
  1. PRIVIGEN (IMMUNE GLOBULIN INTRAVENOUS (HUMAN) 10% LIQUID) [Suspect]
     Indication: IMMUNODEFICIENCY COMMON VARIABLE
     Dosage: (50 G 1X/MONTH, 500 ML OVER 3 HOURS INTRAVENOUS (NOT OTHERWISE SPECIFIED))
     Route: 042
     Dates: start: 20120918, end: 20120918
  2. LEVAQUIN (LEVOFLOXACIN) [Concomitant]
  3. ACETAMINOPHEN (PARACETAMOL) [Concomitant]
  4. SALINE (SODIUM CHLORIDE) [Concomitant]
  5. HEPARIN (HEPARIN) [Concomitant]
  6. LEXAPRO (ESCITALOPRAM OXALATE) [Concomitant]
  7. NUVARING (NUVARING) [Concomitant]
  8. RAMIPRIL (RAMIPRIL) [Concomitant]
  9. ZYRTEC (CETIRIZINE HYDROCHLORIDE) [Concomitant]
  10. TYLENOL (PARACETAMOL) [Concomitant]

REACTIONS (6)
  - Meningitis aseptic [None]
  - Photophobia [None]
  - Headache [None]
  - Pain [None]
  - Pyrexia [None]
  - Chills [None]
